FAERS Safety Report 16717080 (Version 1)
Quarter: 2019Q3

REPORT INFORMATION
  Report Type: Spontaneous
  Country: US (occurrence: US)
  Receive Date: 20190819
  Receipt Date: 20190819
  Transmission Date: 20191005
  Serious: Yes (Other)
  Sender: FDA-Public Use
  Company Number: US-UCBSA-2019033941

PATIENT
  Age: 36 Year
  Sex: Female

DRUGS (1)
  1. CIMZIA [Suspect]
     Active Substance: CERTOLIZUMAB PEGOL
     Indication: PSORIASIS
     Dosage: 200 MILLIGRAM, UNK
     Route: 058
     Dates: start: 20190717, end: 20190717

REACTIONS (5)
  - Off label use [Unknown]
  - Loss of consciousness [Unknown]
  - Urticaria [Unknown]
  - Dizziness [Unknown]
  - Swollen tongue [Unknown]

NARRATIVE: CASE EVENT DATE: 20190717
